FAERS Safety Report 23508805 (Version 3)
Quarter: 2024Q2

REPORT INFORMATION
  Report Type: Spontaneous
  Country: IT (occurrence: IT)
  Receive Date: 20240209
  Receipt Date: 20240412
  Transmission Date: 20240716
  Serious: Yes (Other)
  Sender: FDA-Public Use
  Company Number: IT-002147023-NVSC2024IT015911

PATIENT
  Age: 32 Year
  Sex: Female

DRUGS (1)
  1. KESIMPTA [Suspect]
     Active Substance: OFATUMUMAB
     Indication: Relapsing-remitting multiple sclerosis
     Dosage: 20 MG, QMO (ONCE A MONTH)
     Route: 058
     Dates: start: 20240105

REACTIONS (9)
  - Cytokine release syndrome [Unknown]
  - Body temperature increased [Not Recovered/Not Resolved]
  - Rash [Unknown]
  - Urinary tract infection [Unknown]
  - Injection related reaction [Recovered/Resolved with Sequelae]
  - Pyrexia [Unknown]
  - Headache [Unknown]
  - Asthenia [Unknown]
  - Fatigue [Unknown]

NARRATIVE: CASE EVENT DATE: 20240105
